FAERS Safety Report 19039583 (Version 1)
Quarter: 2021Q1

REPORT INFORMATION
  Report Type: Spontaneous
  Country: US (occurrence: US)
  Receive Date: 20210322
  Receipt Date: 20210322
  Transmission Date: 20210420
  Serious: Yes (Hospitalization)
  Sender: FDA-Public Use
  Company Number: None

PATIENT
  Age: 57 Year
  Sex: Female
  Weight: 120 kg

DRUGS (1)
  1. BAMLANIVIMAB. [Suspect]
     Active Substance: BAMLANIVIMAB
     Indication: COVID-19
     Route: 041
     Dates: start: 20210317, end: 20210317

REACTIONS (8)
  - Eye movement disorder [None]
  - Unresponsive to stimuli [None]
  - Hypoxia [None]
  - Feeling hot [None]
  - Blood pressure decreased [None]
  - Loss of consciousness [None]
  - Blood pressure fluctuation [None]
  - Infusion related reaction [None]

NARRATIVE: CASE EVENT DATE: 20210317
